FAERS Safety Report 7985081-0 (Version None)
Quarter: 2011Q4

REPORT INFORMATION
  Report Type: 
  Country: None (occurrence: None)
  Receive Date: 20111216
  Receipt Date: 20111206
  Transmission Date: 20120403
  Serious: Yes (Hospitalization, Other)
  Sender: FDA-Public Use
  Company Number: PHHY2011AU93532

PATIENT
  Sex: Male

DRUGS (2)
  1. EXJADE [Suspect]
     Indication: IRON OVERLOAD
     Dosage: 500 MG, UNK
     Route: 048
     Dates: start: 20110819
  2. EXJADE [Suspect]
     Dosage: 1000 MG, UNK

REACTIONS (7)
  - VOMITING [None]
  - ABDOMINAL INFECTION [None]
  - DEHYDRATION [None]
  - MALAISE [None]
  - COLITIS ULCERATIVE [None]
  - BODY TEMPERATURE INCREASED [None]
  - DIARRHOEA [None]
